FAERS Safety Report 5856073-2 (Version None)
Quarter: 2008Q3

REPORT INFORMATION
  Report Type: 
  Country: None (occurrence: None)
  Receive Date: 20080821
  Receipt Date: 20080811
  Transmission Date: 20090109
  Serious: Yes (Hospitalization, Other)
  Sender: FDA-Public Use
  Company Number: 2008-01906

PATIENT
  Age: 67 Year
  Sex: Male

DRUGS (6)
  1. VELCADE(BORTEZOMIB) INJECTION [Suspect]
     Indication: MULTIPLE MYELOMA
     Dosage: 1.3MG/M2, INTRAVENOUS
     Route: 042
     Dates: start: 20080215, end: 20080414
  2. THALIDOMIDE [Concomitant]
  3. DEXAMTHASONE [Concomitant]
  4. FLUCONAZOLE [Concomitant]
  5. ACYCLOVIR [Concomitant]
  6. ACETYLSALICYLIC ACID (ACETYLICYLIC ACID) [Concomitant]

REACTIONS (5)
  - HYPOTENSION [None]
  - PYREXIA [None]
  - RENAL FAILURE ACUTE [None]
  - RHABDOMYOLYSIS [None]
  - SEPSIS [None]
